FAERS Safety Report 5584724-9 (Version None)
Quarter: 2008Q1

REPORT INFORMATION
  Report Type: 
  Country: None (occurrence: None)
  Receive Date: 20080108
  Receipt Date: 20071227
  Transmission Date: 20080703
  Serious: Yes (Other)
  Sender: FDA-Public Use
  Company Number: US-PFIZER INC-2007089734

PATIENT
  Age: 51 Year
  Sex: Female
  Weight: 77.1 kg

DRUGS (3)
  1. CHANTIX [Suspect]
     Indication: SMOKING CESSATION THERAPY
     Route: 048
     Dates: start: 20070802, end: 20070101
  2. ESTRACE [Concomitant]
  3. ACETYLSALICYLIC ACID SRT [Concomitant]

REACTIONS (5)
  - ABNORMAL DREAMS [None]
  - HALLUCINATION, VISUAL [None]
  - INSOMNIA [None]
  - MEMORY IMPAIRMENT [None]
  - WEIGHT INCREASED [None]
